FAERS Safety Report 9702850 (Version 2)
Quarter: 2013Q4

REPORT INFORMATION
  Report Type: Spontaneous
  Country: US (occurrence: None)
  Receive Date: 20131120
  Receipt Date: 20131219
  Transmission Date: 20140711
  Serious: Yes (Hospitalization, Disabling, Other)
  Sender: FDA-Public Use
  Company Number: 2013P1020847

PATIENT
  Age: 45 Year
  Sex: Female
  Weight: 76.2 kg

DRUGS (4)
  1. PARNATE TABLETS [Suspect]
     Indication: DEPRESSION
     Route: 048
     Dates: start: 2008, end: 201212
  2. KLONOPIN [Concomitant]
  3. PROVIGIL [Concomitant]
  4. ADDERALL [Concomitant]

REACTIONS (24)
  - Syncope [None]
  - Deafness [None]
  - Blindness transient [None]
  - Bedridden [None]
  - Heart rate increased [None]
  - Blood pressure systolic decreased [None]
  - Blood pressure orthostatic [None]
  - Respiratory arrest [None]
  - Suicidal ideation [None]
  - Therapy cessation [None]
  - Depression [None]
  - Hysterectomy [None]
  - Overdose [None]
  - Dizziness [None]
  - Blood pressure increased [None]
  - Heart rate decreased [None]
  - Abnormal behaviour [None]
  - Therapeutic response decreased [None]
  - Memory impairment [None]
  - Anxiety [None]
  - Sleep disorder [None]
  - Fatigue [None]
  - Vascular operation [None]
  - Cerebrovascular disorder [None]
